FAERS Safety Report 14909837 (Version 1)
Quarter: 2018Q2

REPORT INFORMATION
  Report Type: Spontaneous
  Country: US (occurrence: US)
  Receive Date: 20180430
  Receipt Date: 20180430
  Transmission Date: 20180711
  Serious: Yes (Hospitalization)
  Sender: FDA-Public Use
  Company Number: None

PATIENT
  Age: 71 Year
  Sex: Male
  Weight: 100.35 kg

DRUGS (3)
  1. BD SALINE SYRINGE [Suspect]
     Active Substance: SODIUM CHLORIDE
     Indication: STAPHYLOCOCCAL SEPSIS
     Route: 042
     Dates: start: 20180409, end: 20180421
  2. CEFAZOLIN [Concomitant]
     Active Substance: CEFAZOLIN
     Dates: start: 20180329, end: 20180421
  3. BD SALINE SYRINGE [Suspect]
     Active Substance: SODIUM CHLORIDE
     Indication: STAPHYLOCOCCAL SEPSIS
     Route: 042
     Dates: start: 20180402, end: 20180421

REACTIONS (3)
  - Tachycardia [None]
  - Serratia test positive [None]
  - Product quality issue [None]

NARRATIVE: CASE EVENT DATE: 20180421
